FAERS Safety Report 6163461-6 (Version None)
Quarter: 2009Q2

REPORT INFORMATION
  Report Type: 
  Country: None (occurrence: None)
  Receive Date: 20090422
  Receipt Date: 20030125
  Transmission Date: 20091009
  Serious: No
  Sender: FDA-Public Use
  Company Number: US-SOLVAY-00203000245

PATIENT
  Age: 504 Month
  Sex: Female
  Weight: 86.183 kg

DRUGS (3)
  1. ANDROGEL [Suspect]
     Indication: ACCIDENTAL EXPOSURE
     Dosage: DAILY DOSE: 5 G.
     Route: 062
     Dates: start: 20021001
  2. TENORMIN [Concomitant]
     Indication: HYPERTENSION
     Dosage: DAILY DOSE: 25 MG.
     Route: 048
  3. BIRTH CONTROL PILL [Concomitant]
     Indication: CONTRACEPTION
     Route: 048
     Dates: start: 19900101, end: 20021201

REACTIONS (2)
  - ACNE [None]
  - HIRSUTISM [None]
